FAERS Safety Report 19199678 (Version 1)
Quarter: 2021Q2

REPORT INFORMATION
  Report Type: Spontaneous
  Country: US (occurrence: US)
  Receive Date: 20210430
  Receipt Date: 20210430
  Transmission Date: 20210717
  Serious: Yes (Hospitalization)
  Sender: FDA-Public Use
  Company Number: US-ABBVIE-21K-163-3879863-00

PATIENT
  Age: 71 Year
  Sex: Male
  Weight: 83.99 kg

DRUGS (2)
  1. HUMIRA [Suspect]
     Active Substance: ADALIMUMAB
     Indication: CARDIAC SARCOIDOSIS
     Route: 058
     Dates: start: 202103
  2. PREDNISONE. [Concomitant]
     Active Substance: PREDNISONE
     Indication: VENTRICULAR TACHYCARDIA

REACTIONS (6)
  - Renal impairment [Unknown]
  - Incorrect dose administered [Recovered/Resolved]
  - Device issue [Unknown]
  - Off label use [Recovered/Resolved]
  - Blood creatinine increased [Unknown]
  - Ventricular tachycardia [Unknown]

NARRATIVE: CASE EVENT DATE: 202103
